FAERS Safety Report 7295270-9 (Version None)
Quarter: 2011Q1

REPORT INFORMATION
  Report Type: 
  Country: None (occurrence: None)
  Receive Date: 20110216
  Receipt Date: 20110214
  Transmission Date: 20110831
  Serious: Yes (Death, Hospitalization, Other)
  Sender: FDA-Public Use
  Company Number: US-AMGEN-USASP2011007274

PATIENT
  Age: 59 Year
  Sex: Female
  Weight: 52.608 kg

DRUGS (5)
  1. ANTI-THYMOCYTE GLOBULIN RABBIT NOS [Concomitant]
  2. NPLATE [Suspect]
     Indication: IDIOPATHIC THROMBOCYTOPENIC PURPURA
     Dosage: 250 A?, QWK
     Route: 058
     Dates: start: 20100920, end: 20101011
  3. ARANESP [Concomitant]
  4. CYCLOSPORINE [Concomitant]
  5. SOLU-MEDROL [Concomitant]

REACTIONS (9)
  - HYPOTENSION [None]
  - APLASTIC ANAEMIA [None]
  - HAEMORRHAGE [None]
  - PULMONARY HAEMORRHAGE [None]
  - THROMBOCYTOPENIA [None]
  - RESPIRATORY ARREST [None]
  - LEUKOPENIA [None]
  - INFECTION [None]
  - ANAEMIA [None]
